FAERS Safety Report 18478753 (Version 1)
Quarter: 2020Q4

REPORT INFORMATION
  Report Type: Spontaneous
  Country: US (occurrence: US)
  Receive Date: 20201109
  Receipt Date: 20201109
  Transmission Date: 20210114
  Serious: Yes (Other)
  Sender: FDA-Public Use
  Company Number: US-GW PHARMA-202011USGW03781

PATIENT

DRUGS (1)
  1. EPIDIOLEX [Suspect]
     Active Substance: CANNABIDIOL
     Indication: EPILEPSY
     Dosage: 480 MILLIGRAM, BID (FIRST SHIPPED: 24 MAY 2019)
     Route: 048
     Dates: start: 201905

REACTIONS (1)
  - Seizure [Unknown]
